FAERS Safety Report 18744501 (Version 1)
Quarter: 2021Q1

REPORT INFORMATION
  Report Type: Spontaneous
  Country: US (occurrence: US)
  Receive Date: 20210115
  Receipt Date: 20210115
  Transmission Date: 20210419
  Serious: Yes (Hospitalization)
  Sender: FDA-Public Use
  Company Number: US-SA-2021SA010538

PATIENT
  Age: 83 Year

DRUGS (2)
  1. CAPRELSA [Suspect]
     Active Substance: VANDETANIB
     Indication: METASTASES TO LIVER
     Dosage: 200 MG, QD
     Route: 048
     Dates: start: 20200314
  2. CAPRELSA [Suspect]
     Active Substance: VANDETANIB
     Indication: CHOLANGIOCARCINOMA

REACTIONS (1)
  - Urinary tract infection [Unknown]
